FAERS Safety Report 4594484-6 (Version None)
Quarter: 2005Q1

REPORT INFORMATION
  Report Type: 
  Country: None (occurrence: None)
  Receive Date: 20050223
  Receipt Date: 20050210
  Transmission Date: 20050727
  Serious: Yes (Other)
  Sender: FDA-Public Use
  Company Number: HQWYE740729JUN04

PATIENT
  Age: 52 Year
  Sex: Female
  Weight: 70.37 kg

DRUGS (8)
  1. EFFEXOR XR [Suspect]
     Dosage: SEE IMAGE
     Route: 048
     Dates: start: 20040615, end: 20040101
  2. EFFEXOR XR [Suspect]
     Dosage: SEE IMAGE
     Route: 048
     Dates: start: 20040101, end: 20040708
  3. LIPITOR [Concomitant]
  4. PREVACID [Concomitant]
  5. XANAX [Concomitant]
  6. DARVOCET-N 50 [Concomitant]
  7. BEXTRA [Concomitant]
  8. PAXIL [Concomitant]

REACTIONS (1)
  - DRUG HYPERSENSITIVITY [None]
